FAERS Safety Report 15306418 (Version 1)
Quarter: 2018Q3

REPORT INFORMATION
  Report Type: Spontaneous
  Country: US (occurrence: US)
  Receive Date: 20180822
  Receipt Date: 20180822
  Transmission Date: 20181010
  Serious: No
  Sender: FDA-Public Use
  Company Number: US-SA-2018SA228110

PATIENT
  Sex: Male

DRUGS (3)
  1. LANTUS [Suspect]
     Active Substance: INSULIN GLARGINE
     Indication: DIABETES MELLITUS
     Dosage: UNK, UNK
     Route: 065
  2. ADMELOG [Suspect]
     Active Substance: INSULIN LISPRO
     Indication: DIABETES MELLITUS
     Dosage: 5 IU, TID
     Route: 065
  3. BASAGLAR [Concomitant]
     Active Substance: INSULIN GLARGINE

REACTIONS (2)
  - Device issue [Unknown]
  - Insomnia [Unknown]
